APPROVED DRUG PRODUCT: RIBAVIRIN
Active Ingredient: RIBAVIRIN
Strength: 200MG
Dosage Form/Route: TABLET;ORAL
Application: A202546 | Product #001
Applicant: BEXIMCO PHARMACEUTICALS USA INC
Approved: Aug 12, 2014 | RLD: No | RS: No | Type: DISCN